FAERS Safety Report 7950008-4 (Version None)
Quarter: 2011Q4

REPORT INFORMATION
  Report Type: 
  Country: None (occurrence: None)
  Receive Date: 20111130
  Receipt Date: 20111122
  Transmission Date: 20120403
  Serious: Yes (Other)
  Sender: FDA-Public Use
  Company Number: US-ASTRAZENECA-2011SE71088

PATIENT
  Age: 381 Month
  Sex: Female

DRUGS (2)
  1. NEXIUM [Suspect]
     Route: 048
  2. LISINOPRIL [Suspect]
     Route: 048

REACTIONS (2)
  - CARDIAC FAILURE [None]
  - CARDIOMYOPATHY [None]
